FAERS Safety Report 8132476-0 (Version None)
Quarter: 2012Q1

REPORT INFORMATION
  Report Type: 
  Country: None (occurrence: None)
  Receive Date: 20120208
  Receipt Date: 20120125
  Transmission Date: 20120608
  Serious: Yes (Hospitalization)
  Sender: FDA-Public Use
  Company Number: 1000027666

PATIENT
  Age: 88 Year
  Sex: Female

DRUGS (5)
  1. VOLTARENE (DICLOFENAC SODIUM) (75) (DICLOFENAC SODIUM) [Concomitant]
  2. ESCITALOPRAM [Suspect]
     Indication: MAJOR DEPRESSION
     Dosage: 1 DOSAGE FORM (1 DOSAGE FORMS, 1 IN 1 D), ORAL
     Route: 048
     Dates: start: 20111214, end: 20120116
  3. LEVOTHYROX (LEVOTHYROXINE SODIUM) (25) (LEVOTHYROXINE SODIUM) [Concomitant]
  4. INEXIUM (ESOMEPRAZOLE MAGNESIUM) (20) (ESOMEPRAZOLE MAGNESIUM) [Concomitant]
  5. MICARDIS (TELMISARTAN) (40) (TELMISARTAN) [Concomitant]

REACTIONS (1)
  - ATRIAL FLUTTER [None]
